FAERS Safety Report 14133918 (Version 1)
Quarter: 2017Q4

REPORT INFORMATION
  Report Type: Spontaneous
  Country: FR (occurrence: FR)
  Receive Date: 20171026
  Receipt Date: 20171026
  Transmission Date: 20180321
  Serious: Yes (Congenital Anomaly)
  Sender: FDA-Public Use
  Company Number: FR-ALLERGAN-1760284US

PATIENT
  Age: 1 Day
  Sex: Male
  Weight: 3.13 kg

DRUGS (5)
  1. LUMIGAN [Suspect]
     Active Substance: BIMATOPROST
     Indication: EXPOSURE DURING PREGNANCY
     Dosage: 1 DF, UNK
     Route: 064
     Dates: start: 20150502, end: 20160120
  2. VISMED [Suspect]
     Active Substance: HYALURONATE SODIUM
     Indication: EXPOSURE DURING PREGNANCY
     Dosage: UNK
     Route: 064
     Dates: start: 201505
  3. COMBIGAN [Suspect]
     Active Substance: BRIMONIDINE TARTRATE\TIMOLOL MALEATE
     Indication: EXPOSURE DURING PREGNANCY
     Dosage: 2 DF, QD
     Route: 064
     Dates: start: 20150502, end: 20160120
  4. ALPHAGAN P [Suspect]
     Active Substance: BRIMONIDINE TARTRATE
     Indication: FOETAL EXPOSURE DURING PREGNANCY
     Dosage: 2 DF, QD
     Route: 064
     Dates: start: 20150502, end: 20160120
  5. VEXOL [Suspect]
     Active Substance: RIMEXOLONE
     Indication: EXPOSURE DURING PREGNANCY
     Dosage: 2 DF, QD
     Route: 064
     Dates: start: 20150502, end: 20160120

REACTIONS (3)
  - Foetal exposure during pregnancy [Unknown]
  - Congenital megaureter [Unknown]
  - Foetal heart rate abnormal [Unknown]

NARRATIVE: CASE EVENT DATE: 20160120
